FAERS Safety Report 10215659 (Version 1)
Quarter: 2014Q2

REPORT INFORMATION
  Report Type: Spontaneous
  Country: US (occurrence: None)
  Receive Date: 20140603
  Receipt Date: 20140603
  Transmission Date: 20141212
  Serious: Yes (Other)
  Sender: FDA-Public Use
  Company Number: None

PATIENT
  Age: 73 Year
  Sex: Female
  Weight: 52 kg

DRUGS (2)
  1. TEDUGLUTIDE 5 MG [Suspect]
     Indication: SHORT-BOWEL SYNDROME
     Dosage: 2.6 MG/0.26ML QD SUBCUTANEOUS
     Route: 058
     Dates: start: 20130609
  2. TPN [Concomitant]

REACTIONS (2)
  - Amylase increased [None]
  - Lipase increased [None]
